FAERS Safety Report 6272991-8 (Version None)
Quarter: 2009Q3

REPORT INFORMATION
  Report Type: 
  Country: None (occurrence: None)
  Receive Date: 20090720
  Receipt Date: 20090710
  Transmission Date: 20100115
  Serious: Yes (Other)
  Sender: FDA-Public Use
  Company Number: US-BIOGENIDEC-2009BI020829

PATIENT
  Sex: Female

DRUGS (2)
  1. AVONEX [Suspect]
     Indication: MULTIPLE SCLEROSIS
     Route: 030
     Dates: start: 20010101, end: 20020101
  2. AVONEX [Suspect]
     Route: 030
     Dates: start: 20030701, end: 20030831

REACTIONS (1)
  - CEREBROVASCULAR ACCIDENT [None]
